FAERS Safety Report 6611935-3 (Version None)
Quarter: 2010Q1

REPORT INFORMATION
  Report Type: 
  Country: None (occurrence: None)
  Receive Date: 20100303
  Receipt Date: 20100223
  Transmission Date: 20100710
  Serious: Yes (Other)
  Sender: FDA-Public Use
  Company Number: ES-ABBOTT-10P-144-0625662-00

PATIENT
  Age: 39 Year
  Sex: Female

DRUGS (2)
  1. SIBUTRAMINE [Suspect]
     Indication: OBESITY
     Dosage: NOT REPORTED
  2. CANDESARTAN [Concomitant]
     Indication: HYPERTENSION
     Dosage: NOT REPORTED

REACTIONS (1)
  - ACUTE CORONARY SYNDROME [None]
